FAERS Safety Report 16291679 (Version 2)
Quarter: 2020Q3

REPORT INFORMATION
  Report Type: Spontaneous
  Country: ZA (occurrence: ZA)
  Receive Date: 20190509
  Receipt Date: 20190513
  Transmission Date: 20201105
  Serious: Yes (Hospitalization, Other)
  Sender: FDA-Public Use
  Company Number: IND-ZA-009507513-1905ZAF000021

PATIENT
  Age: 46 Year
  Sex: Male

DRUGS (2)
  1. ETORICOXIB. [Suspect]
     Active Substance: ETORICOXIB
     Indication: PAIN IN EXTREMITY
     Dosage: 90 MILLIGRAM
  2. WARFARIN [Concomitant]
     Active Substance: WARFARIN

REACTIONS (16)
  - Erythema [Recovered/Resolved]
  - Pruritus [Recovered/Resolved]
  - Anxiety [Recovered/Resolved]
  - Haematocrit increased [Unknown]
  - Basophil count increased [Unknown]
  - Haemoglobin increased [Unknown]
  - Monocyte count increased [Unknown]
  - Rash [Recovered/Resolved]
  - Piloerection [Recovered/Resolved]
  - Ocular hyperaemia [Recovered/Resolved]
  - Neutrophil count increased [Unknown]
  - White blood cell count increased [Unknown]
  - Atrial fibrillation [Recovered/Resolved]
  - Pyrexia [Recovered/Resolved]
  - Skin reaction [Recovered/Resolved]
  - Lymphocyte count increased [Unknown]

NARRATIVE: CASE EVENT DATE: 20190418
